FAERS Safety Report 6765922-5 (Version None)
Quarter: 2010Q2

REPORT INFORMATION
  Report Type: 
  Country: None (occurrence: None)
  Receive Date: 20100611
  Receipt Date: 20100608
  Transmission Date: 20101027
  Serious: Yes (Hospitalization)
  Sender: FDA-Public Use
  Company Number: US-BRISTOL-MYERS SQUIBB COMPANY-15075773

PATIENT
  Age: 58 Year
  Sex: Female

DRUGS (12)
  1. ABATACEPT [Suspect]
     Indication: RHEUMATOID ARTHRITIS
     Route: 058
     Dates: start: 20080430
  2. METHOTREXATE [Suspect]
     Indication: RHEUMATOID ARTHRITIS
  3. FUROSEMIDE [Concomitant]
     Dates: start: 20051201
  4. FOLIC ACID [Concomitant]
     Dates: start: 19950101
  5. OXYCONTIN [Concomitant]
     Dates: start: 20060101
  6. ALPRAZOLAM [Concomitant]
     Dates: start: 20000101
  7. RISEDRONATE SODIUM [Concomitant]
     Dates: start: 20080305
  8. OXYCODONE [Concomitant]
     Dates: start: 20060101
  9. LISINOPRIL [Concomitant]
     Dates: start: 19980101
  10. FAMOTIDINE [Concomitant]
     Dates: start: 20080101
  11. CALCIUM + VITAMIN D [Concomitant]
     Route: 048
     Dates: start: 19950101
  12. VITAMIN D [Concomitant]
     Dates: start: 20100101

REACTIONS (1)
  - OEDEMA PERIPHERAL [None]
